FAERS Safety Report 6101659-3 (Version None)
Quarter: 2009Q1

REPORT INFORMATION
  Report Type: 
  Country: None (occurrence: None)
  Receive Date: 20090303
  Receipt Date: 20090303
  Transmission Date: 20090719
  Serious: Yes (Hospitalization)
  Sender: FDA-Public Use
  Company Number: None

PATIENT
  Age: 44 Year
  Sex: Female
  Weight: 90.7194 kg

DRUGS (1)
  1. LIPITOR [Suspect]
     Indication: HYPERCHOLESTEROLAEMIA
     Dosage: 20MG ONCE DAILY PO
     Route: 048
     Dates: start: 20090114, end: 20090220

REACTIONS (9)
  - ARRHYTHMIA [None]
  - BUNDLE BRANCH BLOCK [None]
  - ELECTROCARDIOGRAM ST SEGMENT DEPRESSION [None]
  - GLYCOSYLATED HAEMOGLOBIN INCREASED [None]
  - MUSCLE TWITCHING [None]
  - PALPITATIONS [None]
  - SUPRAVENTRICULAR TACHYCARDIA [None]
  - TREMOR [None]
  - VENTRICULAR EXTRASYSTOLES [None]
